FAERS Safety Report 6279018-2 (Version None)
Quarter: 2009Q3

REPORT INFORMATION
  Report Type: 
  Country: None (occurrence: None)
  Receive Date: 20090723
  Receipt Date: 20090714
  Transmission Date: 20100115
  Serious: Yes (Other)
  Sender: FDA-Public Use
  Company Number: US-WYE-H10152309

PATIENT
  Sex: Female

DRUGS (4)
  1. EFFEXOR XR [Suspect]
     Indication: DEPRESSION
     Dosage: 225 MG, FREQUENCY UNSPECIFIED
     Route: 048
     Dates: start: 20040101, end: 20090701
  2. EFFEXOR XR [Interacting]
     Dosage: 300 MG, FREQUENCY UNSPECIFIED
     Route: 048
     Dates: start: 20090701
  3. FENTANYL-100 [Interacting]
     Dosage: 25 MG, FREQUENCY UNSPECIFIED
     Route: 058
     Dates: start: 20090101, end: 20090701
  4. FENTANYL-100 [Interacting]
     Dosage: 37 MG, FREQUENCY UNSPECIFIED
     Route: 058
     Dates: start: 20090701

REACTIONS (5)
  - DRUG INTERACTION [None]
  - DYSKINESIA [None]
  - DYSPHAGIA [None]
  - HYPOREFLEXIA [None]
  - TREMOR [None]
